FAERS Safety Report 4876325-2 (Version None)
Quarter: 2006Q1

REPORT INFORMATION
  Report Type: 
  Country: None (occurrence: None)
  Receive Date: 20060106
  Receipt Date: 20051227
  Transmission Date: 20060701
  Serious: Yes (Other)
  Sender: FDA-Public Use
  Company Number: 2005BI018684

PATIENT
  Sex: Female

DRUGS (2)
  1. AVONEX [Suspect]
     Indication: MULTIPLE SCLEROSIS
  2. PREMPRO [Concomitant]

REACTIONS (6)
  - BREAST CANCER [None]
  - DIFFICULTY IN WALKING [None]
  - MEMORY IMPAIRMENT [None]
  - MENTAL DISORDER [None]
  - PANIC ATTACK [None]
  - THYROID DISORDER [None]
